FAERS Safety Report 5727568-7 (Version None)
Quarter: 2008Q2

REPORT INFORMATION
  Report Type: 
  Country: None (occurrence: None)
  Receive Date: 20080505
  Receipt Date: 20080428
  Transmission Date: 20081010
  Serious: Yes (Other)
  Sender: FDA-Public Use
  Company Number: JP-SANOFI-SYNTHELABO-A01200805009

PATIENT
  Sex: Male

DRUGS (3)
  1. ISOVORIN [Concomitant]
     Route: 041
     Dates: start: 20070226, end: 20080403
  2. ELPLAT [Suspect]
     Route: 041
     Dates: start: 20080403, end: 20080403
  3. FLUOROURACIL [Suspect]
     Dosage: 400 MG/M2 BOLUS FOLLOWED 2400 MG/M2 INFUSION
     Route: 041
     Dates: start: 20080403, end: 20080403

REACTIONS (1)
  - ACUTE RESPIRATORY FAILURE [None]
